FAERS Safety Report 9394532 (Version 2)
Quarter: 2013Q3

REPORT INFORMATION
  Report Type: Report from Study
  Country: BR (occurrence: BR)
  Receive Date: 20130711
  Receipt Date: 20130807
  Transmission Date: 20140515
  Serious: Yes (Death, Hospitalization, Other)
  Sender: FDA-Public Use
  Company Number: PHHY2013BR073357

PATIENT
  Age: 87 Year
  Sex: Male

DRUGS (2)
  1. EXELON [Suspect]
     Indication: AMNESIA
     Dosage: 1 DF, DAILY
     Route: 048
     Dates: end: 20130521
  2. NATRILIX [Concomitant]
     Indication: BLOOD PRESSURE FLUCTUATION
     Dosage: 1 DF, QD

REACTIONS (5)
  - Paralysis [Fatal]
  - Speech disorder [Fatal]
  - Movement disorder [Fatal]
  - Liver disorder [Fatal]
  - Renal disorder [Fatal]
